FAERS Safety Report 9653349 (Version 1)
Quarter: 2013Q4

REPORT INFORMATION
  Report Type: Spontaneous
  Country: US (occurrence: US)
  Receive Date: 20131029
  Receipt Date: 20131029
  Transmission Date: 20140711
  Serious: No
  Sender: FDA-Public Use
  Company Number: US-PFIZER INC-2013309562

PATIENT
  Sex: Male

DRUGS (1)
  1. LYRICA [Suspect]
     Dosage: 150 MG, 2X/DAY
     Dates: start: 201310

REACTIONS (3)
  - Pain [Unknown]
  - Arthralgia [Unknown]
  - Gait disturbance [Unknown]
